FAERS Safety Report 7147929-1 (Version None)
Quarter: 2010Q4

REPORT INFORMATION
  Report Type: 
  Country: None (occurrence: None)
  Receive Date: 20101206
  Receipt Date: 20101206
  Transmission Date: 20110411
  Serious: Yes (Death)
  Sender: FDA-Public Use
  Company Number: None

PATIENT
  Sex: Male

DRUGS (1)
  1. TEMODAR [Suspect]
     Indication: NEOPLASM MALIGNANT
     Dosage: 340 MG QD 5 DAYS EVERY 21 BUCCAL
     Route: 002
     Dates: start: 20101021, end: 20101118

REACTIONS (1)
  - DEATH [None]
